FAERS Safety Report 15618480 (Version 1)
Quarter: 2018Q4

REPORT INFORMATION
  Report Type: Spontaneous
  Country: US (occurrence: US)
  Receive Date: 20181114
  Receipt Date: 20181114
  Transmission Date: 20190205
  Serious: No
  Sender: FDA-Public Use
  Company Number: US-SUNOVION-2018SUN004370

PATIENT
  Sex: Female

DRUGS (3)
  1. LATUDA [Suspect]
     Active Substance: LURASIDONE HYDROCHLORIDE
     Indication: ANXIETY
     Dosage: 40 MG, UNK
     Route: 048
  2. LAMICTAL [Concomitant]
     Active Substance: LAMOTRIGINE
     Dosage: UNK
  3. LATUDA [Suspect]
     Active Substance: LURASIDONE HYDROCHLORIDE
     Indication: DEPRESSION
     Dosage: 20 MG, UNK
     Route: 048

REACTIONS (10)
  - Drug ineffective for unapproved indication [Unknown]
  - Irritability [Unknown]
  - Anxiety [Unknown]
  - Agitation [Unknown]
  - Off label use [Unknown]
  - Night sweats [Unknown]
  - Premenstrual syndrome [Unknown]
  - Anger [Unknown]
  - Fatigue [Unknown]
  - Depression [Unknown]
